FAERS Safety Report 25791637 (Version 1)
Quarter: 2025Q3

REPORT INFORMATION
  Report Type: Spontaneous
  Country: US (occurrence: None)
  Receive Date: 20250911
  Receipt Date: 20250911
  Transmission Date: 20251020
  Serious: Yes (Hospitalization)
  Sender: FDA-CTU
  Company Number: None

PATIENT
  Age: 62 Year
  Sex: Female

DRUGS (17)
  1. COLLAGENASE SANTYL [Suspect]
     Active Substance: COLLAGENASE CLOSTRIDIUM HISTOLYTICUM
     Indication: Wound
     Dosage: NICKEL THICK LAYER ? DAILY TOPICAL
     Route: 061
     Dates: start: 20250328
  2. Calcium with Vit D [Concomitant]
  3. BIOTIN [Concomitant]
     Active Substance: BIOTIN
  4. Collagen ultra with Vitamin C [Concomitant]
  5. Iron 325 [Concomitant]
  6. MAGNESIUM [Concomitant]
     Active Substance: MAGNESIUM
  7. VITAMIN B12 [Concomitant]
     Active Substance: CYANOCOBALAMIN
  8. LEVOFLOXACIN [Concomitant]
     Active Substance: LEVOFLOXACIN
  9. ACETAMINOPHEN\HYDROCODONE [Concomitant]
     Active Substance: ACETAMINOPHEN\HYDROCODONE
  10. METOPROLOL SUCCINATE [Concomitant]
     Active Substance: METOPROLOL SUCCINATE
  11. PRAVASTATIN [Concomitant]
     Active Substance: PRAVASTATIN
  12. DOCUSATE SODIUM [Concomitant]
     Active Substance: DOCUSATE SODIUM
  13. AMLODIPINE [Concomitant]
     Active Substance: AMLODIPINE BESYLATE
  14. CLOPIDOGREL [Concomitant]
     Active Substance: CLOPIDOGREL BISULFATE
  15. LANTUS SOLOSTAR [Concomitant]
     Active Substance: INSULIN GLARGINE
  16. Risa probiotic [Concomitant]
  17. ZINC [Concomitant]
     Active Substance: ZINC

REACTIONS (3)
  - Wound infection [None]
  - Impaired quality of life [None]
  - Disease progression [None]

NARRATIVE: CASE EVENT DATE: 20250802
